FAERS Safety Report 10830389 (Version 4)
Quarter: 2015Q4

REPORT INFORMATION
  Report Type: Spontaneous
  Country: US (occurrence: US)
  Receive Date: 20150219
  Receipt Date: 20151109
  Transmission Date: 20160304
  Serious: Yes (Hospitalization)
  Sender: FDA-Public Use
  Company Number: US-PFIZER INC-2014318762

PATIENT
  Age: 68 Year
  Sex: Male

DRUGS (23)
  1. LANTUS [Concomitant]
     Active Substance: INSULIN GLARGINE
     Indication: TYPE 2 DIABETES MELLITUS
     Dosage: UNK, 2X/DAY
     Route: 058
  2. ATIVAN [Concomitant]
     Active Substance: LORAZEPAM
     Indication: ANXIETY
     Dosage: 1 MG, EVERY 8 HRS PRN ANXIETY
     Route: 048
  3. LOVAZA [Concomitant]
     Active Substance: OMEGA-3-ACID ETHYL ESTERS
     Dosage: 4 G, DAILY
  4. CIALIS [Concomitant]
     Active Substance: TADALAFIL
     Dosage: 10 MG, DAILY MAX AS NEEDED (MAX 1 TAB DAILY)
     Route: 048
  5. INSULIN GLARGINE [Concomitant]
     Active Substance: INSULIN GLARGINE
     Dosage: 80 IU, 2X/DAY
     Route: 058
  6. CRESTOR [Concomitant]
     Active Substance: ROSUVASTATIN CALCIUM
     Dosage: 20 MG, 1X/DAY
     Route: 048
  7. ZYLOPRIM [Concomitant]
     Active Substance: ALLOPURINOL
     Dosage: 100 MG, DAILY
     Route: 048
  8. PRINIVIL [Concomitant]
     Active Substance: LISINOPRIL
     Dosage: 10 MG, DAILY
     Route: 048
  9. TOPROL XL [Concomitant]
     Active Substance: METOPROLOL SUCCINATE
     Dosage: 100 MG, DAILY
     Route: 048
  10. SYMLIN [Concomitant]
     Active Substance: PRAMLINTIDE ACETATE
     Dosage: INJECT 0.12ML UNDER SKIN, 3X/DAYBEFORE MEALS
     Route: 058
  11. LOTRISONE [Concomitant]
     Active Substance: BETAMETHASONE DIPROPIONATE\CLOTRIMAZOLE
     Dosage: UNK (CLOTRIMAZOLE 1%- BETAMETHASONE DIP 0.05%)
  12. KLONOPIN [Concomitant]
     Active Substance: CLONAZEPAM
     Dosage: 2 MG, (1 TAB IN AM AND 2 TABS AT BEDTIME)
     Route: 048
  13. LASIX [Concomitant]
     Active Substance: FUROSEMIDE
     Dosage: 60 MG, DAILY (40MG IN AM, 20MG IN PM)
     Route: 048
  14. CIALIS [Concomitant]
     Active Substance: TADALAFIL
     Dosage: 5 MG, DAILY (2 TABS (5MG) DAILY)
     Route: 048
  15. ANDROGEL [Concomitant]
     Active Substance: TESTOSTERONE
     Dosage: 1 % (1 PACKET TO AFFECTED AREA EVERY OTHER DAY)
  16. BOSULIF [Suspect]
     Active Substance: BOSUTINIB MONOHYDRATE
     Indication: CHRONIC MYELOID LEUKAEMIA
     Dosage: 300 MG, 1X/DAY (THREE TABLETS OF 100MG PO DAILY)
     Route: 048
  17. CENTRUM SILVER [Concomitant]
     Active Substance: MINERALS\VITAMINS
     Dosage: 1 TAB, DAILY
     Route: 048
  18. TRICOR [Concomitant]
     Active Substance: FENOFIBRATE
     Dosage: 145 MG, DAILY
     Route: 048
  19. INSULIN [Concomitant]
     Active Substance: INSULIN NOS
     Dosage: UNK, 4X/DAY (1 ML 30 X 5/16^)
  20. TRICOR [Concomitant]
     Active Substance: FENOFIBRATE
     Dosage: 145 MG, 1X/DAY
     Route: 048
  21. ASPIRIN 81 [Concomitant]
     Dosage: 81 MG, DAILY
     Route: 048
  22. VITAMIN D3 [Concomitant]
     Active Substance: CHOLECALCIFEROL
     Dosage: 2000 IU, DAILY
     Route: 048
  23. ZETIA [Concomitant]
     Active Substance: EZETIMIBE
     Dosage: 10 MG, DAILY
     Route: 048

REACTIONS (1)
  - Influenza [Unknown]
